FAERS Safety Report 23447780 (Version 2)
Quarter: 2024Q1

REPORT INFORMATION
  Report Type: Report from Study
  Country: FR (occurrence: None)
  Receive Date: 20240126
  Receipt Date: 20240130
  Transmission Date: 20240409
  Serious: Yes (Life-Threatening, Other)
  Sender: FDA-Public Use
  Company Number: 2023A287384

PATIENT
  Sex: Male
  Weight: 78 kg

DRUGS (1)
  1. IMFINZI [Suspect]
     Active Substance: DURVALUMAB
     Indication: Bile duct cancer
     Route: 042
     Dates: start: 20231212

REACTIONS (3)
  - Off label use [Unknown]
  - Febrile bone marrow aplasia [Unknown]
  - Thrombocytopenia [Unknown]
